FAERS Safety Report 4803651-5 (Version None)
Quarter: 2005Q4

REPORT INFORMATION
  Report Type: 
  Country: None (occurrence: None)
  Receive Date: 20051014
  Receipt Date: 20041028
  Transmission Date: 20060501
  Serious: No
  Sender: FDA-Public Use
  Company Number: 04P-131-0279838-00

PATIENT
  Age: 11 Year
  Sex: Female

DRUGS (4)
  1. KALETRA [Suspect]
     Dosage: 2 IN 1 D, PER ORAL
     Route: 048
     Dates: start: 20041014
  2. ZEVIT [Concomitant]
  3. DIDANOSINE [Concomitant]
  4. AGENERACE [Concomitant]

REACTIONS (1)
  - RASH [None]
